FAERS Safety Report 11747820 (Version 1)
Quarter: 2015Q4

REPORT INFORMATION
  Report Type: Spontaneous
  Country: US (occurrence: US)
  Receive Date: 20151117
  Receipt Date: 20151117
  Transmission Date: 20160304
  Serious: No
  Sender: FDA-Public Use
  Company Number: US-NOVOPROD-433479

PATIENT
  Age: 71 Year
  Sex: Female

DRUGS (2)
  1. NOVOLOG MIX 70/30 [Suspect]
     Active Substance: INSULIN ASPART
     Indication: TYPE 2 DIABETES MELLITUS
     Dosage: UNK
     Route: 058
  2. SYNTHROID [Concomitant]
     Active Substance: LEVOTHYROXINE SODIUM
     Indication: THYROID THERAPY

REACTIONS (7)
  - Burning sensation [Recovered/Resolved]
  - Urticaria [Not Recovered/Not Resolved]
  - Swelling face [Recovered/Resolved]
  - Pruritus [Not Recovered/Not Resolved]
  - Rash pruritic [Unknown]
  - Blood glucose increased [Recovered/Resolved]
  - Mass [Recovered/Resolved]
